FAERS Safety Report 5675761-4 (Version None)
Quarter: 2008Q1

REPORT INFORMATION
  Report Type: 
  Country: None (occurrence: None)
  Receive Date: 20080318
  Receipt Date: 20080304
  Transmission Date: 20080703
  Serious: Yes (Hospitalization, Disabling)
  Sender: FDA-Public Use
  Company Number: 2008006417

PATIENT
  Age: 31 Year
  Sex: Female
  Weight: 77.1115 kg

DRUGS (2)
  1. SUDAFED S.A. [Suspect]
     Indication: DRUG USE FOR UNKNOWN INDICATION
  2. ORTHO EVRA [Suspect]
     Indication: CONTRACEPTION
     Dosage: TRANSDERMAL
     Route: 062
     Dates: start: 20030201, end: 20060101

REACTIONS (15)
  - ANXIETY [None]
  - CARDIAC MURMUR [None]
  - CAROTID ARTERY STENOSIS [None]
  - CENTRAL PAIN SYNDROME [None]
  - CEREBRAL INFARCTION [None]
  - CONVULSION [None]
  - DEEP VEIN THROMBOSIS [None]
  - DEPRESSION [None]
  - FACIAL PAIN [None]
  - HYPERCOAGULATION [None]
  - NEURALGIA [None]
  - PANIC ATTACK [None]
  - PULMONARY EMBOLISM [None]
  - SINUS ARRHYTHMIA [None]
  - TRANSIENT ISCHAEMIC ATTACK [None]
